FAERS Safety Report 8375526-9 (Version None)
Quarter: 2012Q1

REPORT INFORMATION
  Report Type: 
  Country: None (occurrence: None)
  Receive Date: 20120323
  Receipt Date: 20110405
  Transmission Date: 20120608
  Serious: Yes (Other)
  Sender: FDA-Public Use
  Company Number: 163-21880-11012916

PATIENT
  Age: 54 Year
  Sex: Female
  Weight: 75.5 kg

DRUGS (7)
  1. MVI (MVI) TABLETS) [Concomitant]
  2. CLARITIN [Concomitant]
  3. REVLIMID [Suspect]
     Indication: MYELODYSPLASTIC SYNDROME
     Dosage: 10 MG, 1 IN 1 D, PO, 5 MG, 1 IN 1 D, PO, 2.5 MG, 1 IN 2 D, PO, 5 MG, 1 IN 1 D, PO
     Route: 048
     Dates: start: 20090201, end: 20101001
  4. REVLIMID [Suspect]
     Indication: MYELODYSPLASTIC SYNDROME
     Dosage: 10 MG, 1 IN 1 D, PO, 5 MG, 1 IN 1 D, PO, 2.5 MG, 1 IN 2 D, PO, 5 MG, 1 IN 1 D, PO
     Route: 048
     Dates: start: 20080801, end: 20090101
  5. REVLIMID [Suspect]
     Indication: MYELODYSPLASTIC SYNDROME
     Dosage: 10 MG, 1 IN 1 D, PO, 5 MG, 1 IN 1 D, PO, 2.5 MG, 1 IN 2 D, PO, 5 MG, 1 IN 1 D, PO
     Route: 048
     Dates: start: 20101016
  6. REVLIMID [Suspect]
     Indication: MYELODYSPLASTIC SYNDROME
     Dosage: 10 MG, 1 IN 1 D, PO, 5 MG, 1 IN 1 D, PO, 2.5 MG, 1 IN 2 D, PO, 5 MG, 1 IN 1 D, PO
     Route: 048
     Dates: start: 20101201
  7. CALCIUM CARBONATE [Concomitant]

REACTIONS (5)
  - URTICARIA [None]
  - SWELLING FACE [None]
  - HYPERSENSITIVITY [None]
  - PRURITUS [None]
  - DRUG DOSE OMISSION [None]
